FAERS Safety Report 12609265 (Version 1)
Quarter: 2016Q3

REPORT INFORMATION
  Report Type: Report from Study
  Country: NL (occurrence: NL)
  Receive Date: 20160801
  Receipt Date: 20160801
  Transmission Date: 20161109
  Serious: Yes (Hospitalization)
  Sender: FDA-Public Use
  Company Number: NL-ROCHE-1805061

PATIENT
  Age: 39 Year

DRUGS (7)
  1. CYCLOPHOSPHAMIDE. [Suspect]
     Active Substance: CYCLOPHOSPHAMIDE
     Indication: HER-2 POSITIVE BREAST CANCER
     Dosage: MOST RECENT DOSE OF CYCLOPHOSPHAMIDEON 02/NOV/2015
     Route: 042
     Dates: start: 20150922
  2. PACLITAXEL. [Suspect]
     Active Substance: PACLITAXEL
     Indication: HER-2 POSITIVE BREAST CANCER
     Dosage: MOST RECENT DOSE OF PACLITAXEL ON 07/MAR/2016 D1(D8)
     Route: 042
     Dates: start: 20151123
  3. PERTUZUMAB [Suspect]
     Active Substance: PERTUZUMAB
     Indication: HER-2 POSITIVE BREAST CANCER
     Dosage: MOST RECENT DOSE OF PERTUZUMAB ON 07/MAR/2016
     Route: 042
     Dates: start: 20151123
  4. TRASTUZUMAB [Suspect]
     Active Substance: TRASTUZUMAB
     Indication: HER-2 POSITIVE BREAST CANCER
     Dosage: MOST RECENT DOSE OF TRASTUZUMAB ON 07/MAR/2016 D1(D8-D15)
     Route: 042
     Dates: start: 20150922
  5. CARBOPLATIN. [Suspect]
     Active Substance: CARBOPLATIN
     Indication: HER-2 POSITIVE BREAST CANCER
     Dosage: MOST RECENT DOSE OF CARBOPLATIN ON 07/MAR/2016 D1(D8)
     Route: 042
     Dates: start: 20151123
  6. FLUOROURACIL. [Suspect]
     Active Substance: FLUOROURACIL
     Indication: HER-2 POSITIVE BREAST CANCER
     Dosage: MOST RECENT DOSE OF FLUROURACIL ON 02/NOV/2015
     Route: 042
     Dates: start: 20150922
  7. EPIRUBICIN [Suspect]
     Active Substance: EPIRUBICIN
     Indication: HER-2 POSITIVE BREAST CANCER
     Dosage: MOST RECENT DOSE OF EPIRUBICIN ON 02/NOV/2015
     Route: 042
     Dates: start: 20150922

REACTIONS (1)
  - Wound infection [Recovered/Resolved]

NARRATIVE: CASE EVENT DATE: 20160715
